FAERS Safety Report 6679091-3 (Version None)
Quarter: 2010Q2

REPORT INFORMATION
  Report Type: 
  Country: None (occurrence: None)
  Receive Date: 20100413
  Receipt Date: 20100329
  Transmission Date: 20101027
  Serious: Yes (Hospitalization)
  Sender: FDA-Public Use
  Company Number: IT-BAYER-200831551GPV

PATIENT
  Age: 70 Year
  Sex: Male

DRUGS (10)
  1. CAMPATH [Suspect]
     Indication: PERIPHERAL T-CELL LYMPHOMA UNSPECIFIED
     Dosage: DOSE ESCALATION
     Route: 058
     Dates: start: 20081104, end: 20081104
  2. CAMPATH [Suspect]
     Dosage: CYCLE 1 OF A-CHOP
     Route: 058
     Dates: start: 20081112
  3. CAMPATH [Suspect]
     Dosage: DOSE ESCALATION
     Route: 058
     Dates: start: 20081105, end: 20081105
  4. PREDNISONE TAB [Suspect]
     Indication: PERIPHERAL T-CELL LYMPHOMA UNSPECIFIED
     Dosage: CYCLE 1 OF A-CHOP
     Dates: start: 20081112
  5. CYCLOPHOSPHAMIDE [Suspect]
     Indication: PERIPHERAL T-CELL LYMPHOMA UNSPECIFIED
     Dosage: CYCLE 1 OF A-CHOP
     Dates: start: 20081112
  6. ADRIAMYCIN PFS [Suspect]
     Indication: PERIPHERAL T-CELL LYMPHOMA UNSPECIFIED
     Dosage: CYCLE 1 OF A-CHOP
     Dates: start: 20081112
  7. VINCRISTINE [Suspect]
     Indication: PERIPHERAL T-CELL LYMPHOMA UNSPECIFIED
     Dosage: CYCLE 1 OF A-CHOP
     Dates: start: 20081112
  8. ZOVIRAX [Concomitant]
     Indication: VIRAL INFECTION
     Route: 042
     Dates: start: 20081113
  9. SPORANOX [Concomitant]
     Indication: FUNGAL INFECTION
     Route: 048
     Dates: start: 20081113
  10. IMIPENEM [Concomitant]
     Indication: BACTERIAL INFECTION
     Route: 042
     Dates: start: 20081113, end: 20081125

REACTIONS (3)
  - MELAENA [None]
  - PRESYNCOPE [None]
  - PYREXIA [None]
